FAERS Safety Report 13157085 (Version 2)
Quarter: 2017Q1

REPORT INFORMATION
  Report Type: Spontaneous
  Country: US (occurrence: US)
  Receive Date: 20170127
  Receipt Date: 20170303
  Transmission Date: 20170428
  Serious: Yes (Other)
  Sender: FDA-Public Use
  Company Number: US-JNJCP-30000367940

PATIENT
  Age: 43 Year
  Sex: Female
  Weight: 77 kg

DRUGS (3)
  1. IVORY SOAP [Concomitant]
     Indication: REMOVAL OF INERT MATTER FROM SKIN OR SUBCUTANEOUS TISSUE
     Route: 061
  2. AVEENO CLEAR COMPLEXION DAILY MOISTURIZER [Suspect]
     Active Substance: SALICYLIC ACID
     Indication: DRY SKIN PROPHYLAXIS
     Dosage: FOUR DABS AS NEEDED
     Route: 061
     Dates: end: 20170109
  3. AVEENO ACTIVE NATURAL POSITIVELY RADIANT DAILY MOISTURIZER SUNSCREEN BROAD SPF15 [Suspect]
     Active Substance: AVOBENZONE\OCTINOXATE\OCTISALATE
     Indication: DRY SKIN PROPHYLAXIS
     Dosage: FEW DABS
     Route: 061
     Dates: end: 20170109

REACTIONS (2)
  - Application site papules [Recovering/Resolving]
  - Application site swelling [Recovering/Resolving]

NARRATIVE: CASE EVENT DATE: 20170109
